FAERS Safety Report 7501081-9 (Version None)
Quarter: 2011Q2

REPORT INFORMATION
  Report Type: 
  Country: None (occurrence: None)
  Receive Date: 20110524
  Receipt Date: 20110517
  Transmission Date: 20111010
  Serious: Yes (Other)
  Sender: FDA-Public Use
  Company Number: US-PFIZER INC-2010172568

PATIENT
  Sex: Female
  Weight: 63 kg

DRUGS (11)
  1. ESTRADIOL [Suspect]
     Dosage: UNK
     Dates: start: 19971001, end: 20020801
  2. CYCRIN [Suspect]
     Indication: HORMONE REPLACEMENT THERAPY
     Dosage: UNK
     Route: 048
     Dates: start: 19900201, end: 20030601
  3. ESTRACE [Suspect]
     Indication: HORMONE REPLACEMENT THERAPY
     Dosage: UNK
     Route: 048
     Dates: start: 19900201, end: 20030601
  4. ESTRACE [Suspect]
     Dosage: UNK
     Dates: start: 19910520, end: 19970624
  5. CYCRIN [Suspect]
     Dosage: UNK
     Dates: start: 19971001, end: 20020801
  6. PROVERA [Suspect]
     Indication: HORMONE REPLACEMENT THERAPY
     Dosage: UNK
     Route: 048
     Dates: start: 19910520, end: 19970624
  7. PROVERA [Suspect]
     Dosage: UNK
     Dates: start: 19971001, end: 20020801
  8. MEDROXYPROGESTERONE ACETATE [Suspect]
     Indication: HORMONE REPLACEMENT THERAPY
     Dosage: UNK
     Route: 048
     Dates: start: 19900201, end: 20030601
  9. ESTRADIOL [Suspect]
     Indication: HORMONE REPLACEMENT THERAPY
     Dosage: UNK
     Route: 048
     Dates: start: 19900201, end: 20030601
  10. ESTRACE [Suspect]
     Dosage: UNK
     Dates: start: 19971001, end: 20020801
  11. VAGIFEM [Suspect]
     Indication: HORMONE REPLACEMENT THERAPY
     Dosage: UNK
     Route: 048
     Dates: start: 19900201, end: 20030601

REACTIONS (2)
  - BREAST CANCER FEMALE [None]
  - OSTEOPOROSIS [None]
